FAERS Safety Report 18314997 (Version 1)
Quarter: 2020Q3

REPORT INFORMATION
  Report Type: Other
  Country: PL (occurrence: PL)
  Receive Date: 20200925
  Receipt Date: 20200925
  Transmission Date: 20201103
  Serious: Yes (Other)
  Sender: FDA-Public Use
  Company Number: PL-B.BRAUN MEDICAL INC.-2091195

PATIENT
  Age: 46 Year
  Sex: Male

DRUGS (1)
  1. CEFUROXIME FOR INJECTION USP AND DEXTROSE INJECTION USP [Suspect]
     Active Substance: CEFUROXIME SODIUM
     Indication: POSTERIOR CAPSULE OPACIFICATION
     Route: 050

REACTIONS (2)
  - Macular oedema [Recovered/Resolved]
  - Serous retinal detachment [Recovered/Resolved]
